FAERS Safety Report 8121164-2 (Version None)
Quarter: 2012Q1

REPORT INFORMATION
  Report Type: 
  Country: None (occurrence: None)
  Receive Date: 20120208
  Receipt Date: 20120201
  Transmission Date: 20120608
  Serious: Yes (Other)
  Sender: FDA-Public Use
  Company Number: JP-BAYER-2011-017460

PATIENT
  Age: 89 Year
  Sex: Male
  Weight: 45 kg

DRUGS (9)
  1. LIVACT [Concomitant]
     Indication: HEPATIC CIRRHOSIS
     Dosage: DAILY DOSE 12.45 G
     Route: 048
  2. NEXAVAR [Suspect]
     Indication: HEPATIC NEOPLASM MALIGNANT
     Dosage: 200 MG, QD
     Route: 048
     Dates: start: 20100209, end: 20100216
  3. NEXAVAR [Suspect]
     Dosage: 400 MG, QD
     Route: 048
     Dates: start: 20100217, end: 20100629
  4. SULFASALAZINE [Concomitant]
     Indication: COLITIS ULCERATIVE
     Dosage: DAILY DOSE 1500 G
     Route: 048
  5. BIOLACTIS [Concomitant]
     Indication: COLITIS ULCERATIVE
     Dosage: DAILY DOSE 3 G
     Route: 048
  6. OLOPATADINE HCL [Concomitant]
     Indication: PRURITUS
     Dosage: DAILY DOSE 10 MG
     Route: 048
     Dates: start: 20101006
  7. NEXAVAR [Suspect]
     Dosage: 200 MG, QD
     Route: 048
     Dates: start: 20100630, end: 20101005
  8. NEXAVAR [Suspect]
     Dosage: 200 MG, QD
     Route: 048
     Dates: start: 20101006, end: 20110302
  9. FERROUS CITRATE [Concomitant]
     Indication: ANAEMIA
     Dosage: DAILY DOSE 50 MG
     Route: 048

REACTIONS (7)
  - PLATELET COUNT DECREASED [None]
  - HYPERKERATOSIS [None]
  - DIARRHOEA [None]
  - HYPERTENSION [None]
  - BRAIN CANCER METASTATIC [None]
  - PRURITUS [None]
  - KERATOACANTHOMA [None]
